FAERS Safety Report 7691231-6 (Version None)
Quarter: 2011Q3

REPORT INFORMATION
  Report Type: 
  Country: None (occurrence: None)
  Receive Date: 20110818
  Receipt Date: 20110809
  Transmission Date: 20111222
  Serious: Yes (Hospitalization)
  Sender: FDA-Public Use
  Company Number: US-ASTRAZENECA-2011SE47792

PATIENT
  Age: 28094 Day
  Sex: Female

DRUGS (10)
  1. METOPROLOL TARTRATE [Concomitant]
     Indication: HYPERTENSION
     Route: 048
  2. KETOROLAC TROMETHAMINE [Concomitant]
     Indication: CATARACT OPERATION
  3. FOMOTIDINE [Concomitant]
     Indication: GASTROOESOPHAGEAL REFLUX DISEASE
     Route: 048
  4. SERTRALINE HYDROCHLORIDE [Concomitant]
     Indication: ANXIETY
     Route: 048
  5. ACETYLSALICYLIC ACID SRT [Concomitant]
  6. SERTRALINE HYDROCHLORIDE [Concomitant]
     Indication: DEPRESSION
     Route: 048
  7. SIMVASTATIN [Concomitant]
     Indication: HYPERLIPIDAEMIA
     Route: 048
  8. CLOPIDOGREL [Suspect]
     Indication: CORONARY ARTERY DISEASE
     Route: 048
     Dates: start: 20110718, end: 20110806
  9. CLOPIDOGREL [Suspect]
     Route: 048
     Dates: start: 20110808
  10. METFORMIN [Concomitant]
     Indication: TYPE 2 DIABETES MELLITUS
     Route: 048

REACTIONS (2)
  - ACCELERATED HYPERTENSION [None]
  - CHEST PAIN [None]
